FAERS Safety Report 14120710 (Version 4)
Quarter: 2018Q2

REPORT INFORMATION
  Report Type: Spontaneous
  Country: US (occurrence: US)
  Receive Date: 20171024
  Receipt Date: 20180516
  Transmission Date: 20180711
  Serious: Yes (Other)
  Sender: FDA-Public Use
  Company Number: US-PFIZER INC-2017452889

PATIENT
  Age: 8 Year
  Sex: Male
  Weight: 23 kg

DRUGS (3)
  1. GENOTROPIN [Suspect]
     Active Substance: SOMATROPIN
     Indication: SMALL FOR DATES BABY
     Dosage: 0.9 MG, 1X/DAY
     Dates: start: 201704, end: 201705
  2. GENOTROPIN [Suspect]
     Active Substance: SOMATROPIN
     Dosage: UNK
     Route: 058
     Dates: start: 2012, end: 201707
  3. GENOTROPIN [Suspect]
     Active Substance: SOMATROPIN
     Dosage: 0.9 MG, DAILY
     Route: 058
     Dates: start: 201207, end: 201706

REACTIONS (3)
  - Autoimmune disorder [Not Recovered/Not Resolved]
  - Malaise [Not Recovered/Not Resolved]
  - Parapsoriasis [Recovered/Resolved]

NARRATIVE: CASE EVENT DATE: 2017
